FAERS Safety Report 23978033 (Version 1)
Quarter: 2024Q2

REPORT INFORMATION
  Report Type: Report from Study
  Country: AS (occurrence: AS)
  Receive Date: 20240614
  Receipt Date: 20240614
  Transmission Date: 20240716
  Serious: Yes (Other)
  Sender: FDA-Public Use
  Company Number: AS-ABBVIE-5798989

PATIENT
  Sex: Male

DRUGS (1)
  1. RINVOQ [Suspect]
     Active Substance: UPADACITINIB
     Indication: Ankylosing spondylitis
     Route: 048
     Dates: start: 20231117, end: 2024

REACTIONS (9)
  - Small intestinal resection [Unknown]
  - Malaise [Unknown]
  - Cerebrovascular accident [Unknown]
  - Blood pressure abnormal [Unknown]
  - Therapy cessation [Unknown]
  - Peripheral swelling [Unknown]
  - Eye pruritus [Unknown]
  - Dermatitis acneiform [Unknown]
  - Nasal pruritus [Unknown]

NARRATIVE: CASE EVENT DATE: 20240101
